FAERS Safety Report 10590887 (Version 2)
Quarter: 2014Q4

REPORT INFORMATION
  Report Type: Spontaneous
  Country: US (occurrence: US)
  Receive Date: 20141118
  Receipt Date: 20141125
  Transmission Date: 20150529
  Serious: No
  Sender: FDA-Public Use
  Company Number: US-PFIZER INC-2014310176

PATIENT
  Age: 58 Year
  Sex: Female

DRUGS (2)
  1. GABAPENTIN. [Suspect]
     Active Substance: GABAPENTIN
     Dosage: UNK
  2. TIZANIDINE (TIZANIDINE) [Suspect]
     Active Substance: TIZANIDINE
     Dosage: UNK

REACTIONS (14)
  - Walking aid user [Unknown]
  - Poor quality sleep [Unknown]
  - Extensor plantar response [Unknown]
  - Sciatica [Unknown]
  - Peripheral swelling [Unknown]
  - Grip strength [Unknown]
  - Joint range of motion decreased [Unknown]
  - Hypertonia [Unknown]
  - Asthenia [Unknown]
  - Peroneal nerve palsy [Unknown]
  - Back pain [Unknown]
  - Somnolence [Unknown]
  - Hyperreflexia [Unknown]
  - Nystagmus [Unknown]
